FAERS Safety Report 5589702-1 (Version None)
Quarter: 2008Q1

REPORT INFORMATION
  Report Type: 
  Country: None (occurrence: None)
  Receive Date: 20080114
  Receipt Date: 20080104
  Transmission Date: 20080703
  Serious: Yes (Hospitalization)
  Sender: FDA-Public Use
  Company Number: B0497708A

PATIENT
  Age: 38 Year
  Sex: Male

DRUGS (1)
  1. CEFUROXIME SODIUM [Suspect]
     Indication: PROPHYLAXIS
     Dosage: 750MG THREE TIMES PER DAY
     Route: 065
     Dates: start: 20071111

REACTIONS (3)
  - HAEMOLYSIS [None]
  - HYPERBILIRUBINAEMIA [None]
  - PHARMACEUTICAL PRODUCT COMPLAINT [None]
